FAERS Safety Report 13737627 (Version 1)
Quarter: 2017Q3

REPORT INFORMATION
  Report Type: Spontaneous
  Country: US (occurrence: US)
  Receive Date: 20170710
  Receipt Date: 20170710
  Transmission Date: 20171127
  Serious: No
  Sender: FDA-Public Use
  Company Number: US-SAOL THERAPEUTICS-2016SAO00068

PATIENT
  Age: 55 Year
  Sex: Male
  Weight: 108.84 kg

DRUGS (7)
  1. COMPOUNDED BACLOFEN [Suspect]
     Active Substance: BACLOFEN
     Indication: POST LAMINECTOMY SYNDROME
  2. COMPOUNDED BACLOFEN [Suspect]
     Active Substance: BACLOFEN
     Indication: POST LAMINECTOMY SYNDROME
  3. MORPHINE [Suspect]
     Active Substance: MORPHINE
     Dosage: 5.614 MG, \DAY
     Route: 037
  4. COMPOUNDED BACLOFEN [Suspect]
     Active Substance: BACLOFEN
     Indication: PAIN
     Dosage: 44.91 ?G, \DAY
     Route: 037
     Dates: start: 20160525
  5. COMPOUNDED BACLOFEN [Suspect]
     Active Substance: BACLOFEN
     Indication: PAIN
     Dosage: 22.46 ?G/DAY
     Route: 037
     Dates: start: 20140313, end: 20160525
  6. BACLOFEN. [Concomitant]
     Active Substance: BACLOFEN
     Dosage: 20 MG, 3X/DAY
     Route: 048
     Dates: start: 20140313
  7. OXYCODONE [Concomitant]
     Active Substance: OXYCODONE
     Dosage: 15 MG, 1X/DAY
     Route: 048

REACTIONS (23)
  - Off label use [Unknown]
  - Dyspnoea [Unknown]
  - Anal incontinence [Unknown]
  - Fatigue [Unknown]
  - Vomiting [Unknown]
  - Urinary incontinence [Unknown]
  - Anxiety [Unknown]
  - Decreased appetite [Unknown]
  - Pain [Unknown]
  - Headache [Unknown]
  - Nausea [Unknown]
  - Intervertebral disc degeneration [Unknown]
  - Osteoarthritis [Unknown]
  - Viral infection [Recovered/Resolved]
  - Constipation [Unknown]
  - Muscle spasms [Unknown]
  - Muscular weakness [Unknown]
  - Hypoaesthesia [Unknown]
  - Poisoning [Unknown]
  - Sciatica [Unknown]
  - Chills [Unknown]
  - Depression [Unknown]
  - Influenza like illness [Recovered/Resolved]

NARRATIVE: CASE EVENT DATE: 20160329
